FAERS Safety Report 26000199 (Version 1)
Quarter: 2025Q4

REPORT INFORMATION
  Report Type: Spontaneous
  Country: GB (occurrence: GB)
  Receive Date: 20251105
  Receipt Date: 20251105
  Transmission Date: 20260118
  Serious: Yes (Other)
  Sender: B. BRAUN MEDICAL INC.
  Company Number: None

PATIENT
  Age: 25 Year
  Sex: Male

DRUGS (3)
  1. ACETAMINOPHEN [Suspect]
     Active Substance: ACETAMINOPHEN
  2. CODEINE [Suspect]
     Active Substance: CODEINE
  3. ASPIRIN [Suspect]
     Active Substance: ASPIRIN

REACTIONS (1)
  - Atopic cough [Recovered/Resolved]

NARRATIVE: CASE EVENT DATE: 20251001
